FAERS Safety Report 10599382 (Version 1)
Quarter: 2014Q4

REPORT INFORMATION
  Report Type: Spontaneous
  Country: FR (occurrence: FR)
  Receive Date: 20141121
  Receipt Date: 20141121
  Transmission Date: 20150529
  Serious: Yes (Hospitalization, Other)
  Sender: FDA-Public Use
  Company Number: FR-GLAXOSMITHKLINE-FR2014GSK024331

PATIENT
  Age: 5 Year
  Sex: Female

DRUGS (4)
  1. RIVOTRIL [Concomitant]
     Active Substance: CLONAZEPAM
     Dosage: UNK
     Dates: start: 201409
  2. LAMICTAL [Suspect]
     Active Substance: LAMOTRIGINE
     Indication: EPILEPSY
     Dosage: 10 MG, BID
     Route: 048
     Dates: start: 201407, end: 20141029
  3. KEPPRA [Concomitant]
     Active Substance: LEVETIRACETAM
     Indication: EPILEPSY
     Dosage: 500 MG, BID
     Route: 048
     Dates: start: 201310, end: 20141029
  4. MICROPAKINE [Concomitant]
     Active Substance: VALPROIC ACID
     Dosage: UNK
     Dates: start: 201409

REACTIONS (2)
  - Encephalopathy [Recovered/Resolved]
  - Electroencephalogram abnormal [Recovering/Resolving]

NARRATIVE: CASE EVENT DATE: 201409
